FAERS Safety Report 5840116-6 (Version None)
Quarter: 2008Q3

REPORT INFORMATION
  Report Type: 
  Country: None (occurrence: None)
  Receive Date: 20080811
  Receipt Date: 20080805
  Transmission Date: 20090109
  Serious: Yes (Hospitalization)
  Sender: FDA-Public Use
  Company Number: D0058271A

PATIENT
  Age: 63 Year
  Sex: Male
  Weight: 96 kg

DRUGS (6)
  1. AVANDAMET [Suspect]
     Dosage: 1004MG PER DAY
     Route: 065
     Dates: start: 20051201, end: 20080101
  2. BISOPROLOL FUMARATE [Concomitant]
     Indication: HYPERTENSION
     Route: 065
     Dates: start: 20040101
  3. ASPIRIN [Concomitant]
     Route: 065
     Dates: start: 20050101
  4. SIMVASTATIN [Concomitant]
     Route: 065
     Dates: start: 20050101
  5. APROMAL TAB [Concomitant]
     Route: 065
     Dates: start: 20040101
  6. OMEPRAZOLE [Concomitant]
     Route: 065
     Dates: start: 20040101

REACTIONS (2)
  - BREAST PAIN [None]
  - CARDIOVASCULAR DISORDER [None]
